FAERS Safety Report 8345783-3 (Version None)
Quarter: 2012Q2

REPORT INFORMATION
  Report Type: 
  Country: None (occurrence: None)
  Receive Date: 20120508
  Receipt Date: 20120425
  Transmission Date: 20120825
  Serious: Yes (Death, Life-Threatening, Hospitalization, Disabling, Other)
  Sender: FDA-Public Use
  Company Number: US-MYLANLABS-2009AC000031

PATIENT
  Age: 60 Year
  Sex: Female
  Weight: 90.72 kg

DRUGS (27)
  1. ZESTRIL [Concomitant]
  2. LISINOPRIL [Concomitant]
  3. TRAMADOL HYDROCHLORIDE [Concomitant]
  4. METFORMIN [Concomitant]
  5. PLAVIX [Concomitant]
  6. CRESTOR [Concomitant]
  7. INSULIN [Concomitant]
  8. GABAPENTIN [Concomitant]
  9. TOPROL-XL [Concomitant]
  10. LOPRESSOR [Concomitant]
  11. HALPRIN [Concomitant]
  12. DOPAMINE HCL [Concomitant]
  13. NITROGLYCERIN [Concomitant]
  14. TYLENOL (CAPLET) [Concomitant]
  15. ACCUPRIL [Concomitant]
  16. DIGOXIN [Suspect]
     Route: 048
     Dates: start: 19970401, end: 20080327
  17. MULTI-VITAMIN [Concomitant]
  18. LANTUS [Concomitant]
  19. AMIODARONE HCL [Concomitant]
  20. DEMADEX [Concomitant]
  21. LOVASTATIN [Concomitant]
  22. SYNTHROID [Concomitant]
  23. COUMADIN [Concomitant]
  24. GLUCOPHAGE [Concomitant]
  25. LASIX [Concomitant]
  26. NIPRIDE [Concomitant]
  27. LYRICA [Concomitant]

REACTIONS (71)
  - PAIN [None]
  - ATRIAL FIBRILLATION [None]
  - BLOOD PRESSURE INCREASED [None]
  - CAROTID ARTERY DISEASE [None]
  - CARDIAC MURMUR [None]
  - HYPERTENSION [None]
  - UNRESPONSIVE TO STIMULI [None]
  - CARDIO-RESPIRATORY ARREST [None]
  - FATIGUE [None]
  - OEDEMA PERIPHERAL [None]
  - DYSPNOEA EXERTIONAL [None]
  - ANGINA UNSTABLE [None]
  - CARDIOMEGALY [None]
  - MALIGNANT HYPERTENSION [None]
  - PALPITATIONS [None]
  - ASTHMA [None]
  - NEUROPATHY PERIPHERAL [None]
  - BACK PAIN [None]
  - OPEN WOUND [None]
  - NOCTURNAL DYSPNOEA [None]
  - PAIN IN EXTREMITY [None]
  - CARDIOMYOPATHY [None]
  - CHEST PAIN [None]
  - WEIGHT INCREASED [None]
  - DERMATITIS [None]
  - NASAL CONGESTION [None]
  - BUNDLE BRANCH BLOCK [None]
  - CARDIAC FAILURE CONGESTIVE [None]
  - DYSPNOEA [None]
  - ENDARTERECTOMY [None]
  - ISCHAEMIC CARDIOMYOPATHY [None]
  - MITRAL VALVE PROLAPSE [None]
  - BRONCHITIS [None]
  - MOBILITY DECREASED [None]
  - OSTEOARTHRITIS [None]
  - ELECTROCARDIOGRAM ABNORMAL [None]
  - PLEURAL EFFUSION [None]
  - LEFT VENTRICULAR DYSFUNCTION [None]
  - ARTERIOSCLEROSIS CORONARY ARTERY [None]
  - PERIPHERAL VASCULAR DISORDER [None]
  - WHEEZING [None]
  - COUGH [None]
  - ASTHENIA [None]
  - WOUND SECRETION [None]
  - SWELLING [None]
  - WALKING AID USER [None]
  - CHEST DISCOMFORT [None]
  - ARTHRALGIA [None]
  - VENTRICULAR FIBRILLATION [None]
  - CORONARY ARTERY DISEASE [None]
  - ATELECTASIS [None]
  - EJECTION FRACTION DECREASED [None]
  - BLOOD UREA INCREASED [None]
  - DIABETES MELLITUS [None]
  - CARDIAC ARREST [None]
  - VENTRICULAR TACHYCARDIA [None]
  - FALL [None]
  - INJURY [None]
  - DEATH [None]
  - HYPONATRAEMIA [None]
  - HYPERLIPIDAEMIA [None]
  - SYNCOPE [None]
  - CAROTID ARTERY STENOSIS [None]
  - HYPOTHYROIDISM [None]
  - GENERALISED OEDEMA [None]
  - OBESITY [None]
  - CONDITION AGGRAVATED [None]
  - HEART RATE INCREASED [None]
  - CORONARY ARTERY BYPASS [None]
  - ANGIOPLASTY [None]
  - BLISTER [None]
